FAERS Safety Report 14979131 (Version 1)
Quarter: 2018Q2

REPORT INFORMATION
  Report Type: Spontaneous
  Country: US (occurrence: US)
  Receive Date: 20180516
  Receipt Date: 20180516
  Transmission Date: 20180711
  Serious: No
  Sender: FDA-Public Use
  Company Number: None

PATIENT
  Age: 49 Year
  Sex: Female
  Weight: 67.5 kg

DRUGS (11)
  1. BACLOFEN. [Concomitant]
     Active Substance: BACLOFEN
  2. SYNTHROID [Concomitant]
     Active Substance: LEVOTHYROXINE SODIUM
  3. VITAMIN B12 [Concomitant]
     Active Substance: CYANOCOBALAMIN
  4. GLYCOPYRROLATE. [Concomitant]
     Active Substance: GLYCOPYRROLATE
  5. MELATONIN [Concomitant]
     Active Substance: MELATONIN
  6. NUEDEXTA [Concomitant]
     Active Substance: DEXTROMETHORPHAN HYDROBROMIDE\QUINIDINE SULFATE
  7. LEXAPRO [Concomitant]
     Active Substance: ESCITALOPRAM OXALATE
  8. VITAMIN D [Concomitant]
     Active Substance: CHOLECALCIFEROL
  9. RADICAVA [Suspect]
     Active Substance: EDARAVONE
     Indication: AMYOTROPHIC LATERAL SCLEROSIS
     Dosage: ?          QUANTITY:1 IV;OTHER FREQUENCY:10 DAYS ON, 14 DAY;?
     Route: 042
     Dates: start: 20180219, end: 20180501
  10. CALCIUM [Concomitant]
     Active Substance: CALCIUM
  11. RILUZOLE. [Concomitant]
     Active Substance: RILUZOLE

REACTIONS (4)
  - Muscular weakness [None]
  - Drug ineffective [None]
  - Disease progression [None]
  - Dysphagia [None]

NARRATIVE: CASE EVENT DATE: 20180501
